FAERS Safety Report 9378569 (Version 1)
Quarter: 2013Q3

REPORT INFORMATION
  Report Type: Report from Study
  Country: AR (occurrence: AR)
  Receive Date: 20130702
  Receipt Date: 20130702
  Transmission Date: 20140515
  Serious: Yes (Death)
  Sender: FDA-Public Use
  Company Number: AR-ROCHE-1243389

PATIENT
  Sex: Female

DRUGS (2)
  1. MABTHERA [Suspect]
     Indication: B-CELL LYMPHOMA
     Route: 065
     Dates: start: 20120724
  2. BENDAMUSTINE [Concomitant]
     Indication: B-CELL LYMPHOMA

REACTIONS (2)
  - Death [Fatal]
  - Disease recurrence [Unknown]
